FAERS Safety Report 9772216 (Version 4)
Quarter: 2014Q1

REPORT INFORMATION
  Report Type: Spontaneous
  Country: FR (occurrence: FR)
  Receive Date: 20131219
  Receipt Date: 20140120
  Transmission Date: 20141002
  Serious: Yes (Hospitalization)
  Sender: FDA-Public Use
  Company Number: PHHY2013FR146608

PATIENT
  Age: 45 Year
  Sex: Female

DRUGS (2)
  1. GILENYA [Suspect]
     Indication: RELAPSING-REMITTING MULTIPLE SCLEROSIS
     Dosage: UNK
     Route: 048
     Dates: start: 20130715, end: 20131209
  2. EFFERALGAN [Concomitant]

REACTIONS (6)
  - Septic shock [Recovering/Resolving]
  - Pneumonia pneumococcal [Recovered/Resolved]
  - Dyspnoea [Recovering/Resolving]
  - Pyrexia [Recovering/Resolving]
  - Influenza [Recovering/Resolving]
  - Lymphocyte count decreased [Unknown]
